FAERS Safety Report 18695081 (Version 1)
Quarter: 2021Q1

REPORT INFORMATION
  Report Type: Spontaneous
  Country: US (occurrence: US)
  Receive Date: 20210104
  Receipt Date: 20210104
  Transmission Date: 20210419
  Serious: Yes (Death, Life-Threatening, Hospitalization, Other)
  Sender: FDA-Public Use
  Company Number: US-PFIZER INC-2020503014

PATIENT
  Age: 60 Year
  Sex: Female

DRUGS (1)
  1. HEPARIN SODIUM. [Suspect]
     Active Substance: HEPARIN SODIUM
     Indication: PAIN IN EXTREMITY
     Dosage: 50 MG, 4X/DAY, INTRAMUSCULARLY EVERY 6 HOURS
     Route: 030

REACTIONS (3)
  - Coma [Unknown]
  - Embolism arterial [Fatal]
  - Hemiplegia [Fatal]
